FAERS Safety Report 7033502-2 (Version None)
Quarter: 2010Q4

REPORT INFORMATION
  Report Type: 
  Country: None (occurrence: None)
  Receive Date: 20101007
  Receipt Date: 20100929
  Transmission Date: 20110411
  Serious: Yes (Death, Hospitalization)
  Sender: FDA-Public Use
  Company Number: AU-AMGEN-QUU434217

PATIENT
  Sex: Male

DRUGS (3)
  1. NEUPOGEN [Suspect]
     Indication: NEUTROPENIA
     Route: 058
     Dates: start: 20100810, end: 20100815
  2. FLUCLOXACILLIN [Suspect]
  3. AUGMENTIN '125' [Concomitant]
     Dates: start: 20100809, end: 20100816

REACTIONS (2)
  - HEPATIC FAILURE [None]
  - SPLENIC INFARCTION [None]
